FAERS Safety Report 11843976 (Version 1)
Quarter: 2015Q4

REPORT INFORMATION
  Report Type: Spontaneous
  Country: IN (occurrence: IN)
  Receive Date: 20151217
  Receipt Date: 20151217
  Transmission Date: 20160305
  Serious: Yes (Death, Other)
  Sender: FDA-Public Use
  Company Number: PHHY2015IN163590

PATIENT
  Age: 60 Year
  Sex: Male

DRUGS (2)
  1. CICLOSPORIN [Suspect]
     Active Substance: CYCLOSPORINE
     Indication: T-CELL LYMPHOMA
     Dosage: 100 MG, BID
     Route: 065
  2. CYCLOPHOSPHAMIDE. [Suspect]
     Active Substance: CYCLOPHOSPHAMIDE
     Indication: T-CELL LYMPHOMA
     Dosage: 100 MG/KG, QD
     Route: 065

REACTIONS (4)
  - Pneumonia fungal [Fatal]
  - T-cell lymphoma [Fatal]
  - Drug ineffective [Unknown]
  - Disease progression [Fatal]
